FAERS Safety Report 17029168 (Version 1)
Quarter: 2019Q4

REPORT INFORMATION
  Report Type: Spontaneous
  Country: US (occurrence: US)
  Receive Date: 20191114
  Receipt Date: 20191114
  Transmission Date: 20200122
  Serious: No
  Sender: FDA-Public Use
  Company Number: US-TEVA-2019-US-1133895

PATIENT
  Sex: Male

DRUGS (3)
  1. BUTRANS [Suspect]
     Active Substance: BUPRENORPHINE
     Indication: PAIN IN EXTREMITY
  2. BUTRANS [Suspect]
     Active Substance: BUPRENORPHINE
     Indication: HYPOAESTHESIA
     Route: 065
  3. BUTRANS [Suspect]
     Active Substance: BUPRENORPHINE
     Indication: BACK PAIN
     Dosage: DOSE STRENGTH:  20 MCG/HR
     Route: 062
     Dates: start: 201902

REACTIONS (6)
  - Application site erythema [Unknown]
  - Application site pruritus [Unknown]
  - Application site urticaria [Unknown]
  - Application site irritation [Unknown]
  - Skin weeping [Unknown]
  - Application site pain [Unknown]

NARRATIVE: CASE EVENT DATE: 2019
